FAERS Safety Report 20960953 (Version 1)
Quarter: 2022Q2

REPORT INFORMATION
  Report Type: Spontaneous
  Country: DK (occurrence: DK)
  Receive Date: 20220615
  Receipt Date: 20220615
  Transmission Date: 20220721
  Serious: Yes (Other)
  Sender: FDA-Public Use
  Company Number: DK-002147023-NVSC2022DK132033

PATIENT

DRUGS (2)
  1. ERENUMAB [Suspect]
     Active Substance: ERENUMAB
     Indication: Migraine
     Dosage: 140 MG ERENUMAB AND RECEIVED THIS DOSE FROM WEEK 1 THROUGH WEEK 12
     Route: 065
     Dates: start: 201901
  2. ERENUMAB [Suspect]
     Active Substance: ERENUMAB
     Dosage: 70 MG ERENUMAB FROM WEEK 13 THROUGH WEEK 24.
     Route: 065

REACTIONS (1)
  - Pulmonary embolism [Unknown]
